FAERS Safety Report 7046911-2 (Version None)
Quarter: 2010Q4

REPORT INFORMATION
  Report Type: 
  Country: None (occurrence: None)
  Receive Date: 20101015
  Receipt Date: 20101013
  Transmission Date: 20110411
  Serious: Yes (Hospitalization)
  Sender: FDA-Public Use
  Company Number: PHHO2010JP13196

PATIENT
  Sex: Male
  Weight: 69 kg

DRUGS (16)
  1. MYCOPHENOLATE MOFETIL [Suspect]
     Indication: RENAL TRANSPLANT
     Dosage: 1500 MG, DAILY
     Route: 048
     Dates: start: 20090312
  2. SANDIMMUNE [Suspect]
     Indication: RENAL TRANSPLANT
     Dosage: UNK
     Route: 048
     Dates: start: 20090308
  3. PREDONINE [Suspect]
     Indication: RENAL TRANSPLANT
     Dosage: 5 MG, DAILY
     Route: 048
     Dates: start: 20090408
  4. BAKTAR [Concomitant]
     Indication: ANTIBIOTIC PROPHYLAXIS
  5. HALCION [Concomitant]
     Indication: INSOMNIA
  6. ASPIRIN [Concomitant]
     Indication: PROPHYLAXIS
  7. ALLOID [Concomitant]
     Indication: GASTRITIS PROPHYLAXIS
  8. AMLODIPINE BESYLATE [Concomitant]
     Indication: HYPERTENSION
  9. DOXAZOSIN MESYLATE [Concomitant]
     Indication: HYPERTENSION
  10. DAIO-KANZO-TO [Concomitant]
     Indication: CONSTIPATION
  11. LAC B [Concomitant]
     Indication: CONSTIPATION
  12. MICARDIS [Concomitant]
     Indication: HYPERTENSION
  13. GASMOTIN [Concomitant]
     Indication: REFLUX OESOPHAGITIS
  14. ALOSENN [Concomitant]
     Indication: CONSTIPATION
  15. PROTECADIN [Concomitant]
     Indication: HYPERTENSION
  16. ZYLORIC [Concomitant]
     Indication: HYPERURICAEMIA

REACTIONS (1)
  - BLOOD CREATININE INCREASED [None]
